FAERS Safety Report 22907766 (Version 4)
Quarter: 2023Q4

REPORT INFORMATION
  Report Type: Spontaneous
  Country: AT (occurrence: AT)
  Receive Date: 20230905
  Receipt Date: 20231010
  Transmission Date: 20240110
  Serious: Yes (Hospitalization)
  Sender: FDA-Public Use
  Company Number: AT-TEVA-2023-AT-2921785

PATIENT
  Age: 73 Year
  Sex: Male
  Weight: 65 kg

DRUGS (18)
  1. RITUXIMAB [Suspect]
     Active Substance: RITUXIMAB
     Indication: Follicular lymphoma
     Dosage: 672 MG, EVERY 4 WEEKS
     Route: 042
     Dates: start: 20230419, end: 20230713
  2. LENALIDOMIDE [Suspect]
     Active Substance: LENALIDOMIDE
     Indication: Follicular lymphoma
     Dosage: 20 MILLIGRAM DAILY; DAILY DOSE(S): 20 MG DAY 1 TO 21, EVERY 1 DAYS
     Route: 048
     Dates: start: 20230419, end: 20230802
  3. EPCORITAMAB [Suspect]
     Active Substance: EPCORITAMAB
     Indication: Follicular lymphoma
     Dosage: DAILY DOSE(S): 24 MG, EVERY 1 WEEKS
     Route: 058
     Dates: start: 20230419, end: 20230713
  4. EPCORITAMAB [Suspect]
     Active Substance: EPCORITAMAB
     Dosage: DAILY DOSE(S): 24 MG, C4-12 EVERY 4 WEEK
     Route: 058
     Dates: start: 20230419, end: 20230713
  5. TAMSULOSIN HYDROCHLORIDE [Concomitant]
     Active Substance: TAMSULOSIN HYDROCHLORIDE
     Indication: Benign prostatic hyperplasia
     Dosage: 0.4 MILLIGRAM DAILY;
     Dates: start: 20230517
  6. RAMIPRIL [Concomitant]
     Active Substance: RAMIPRIL
     Indication: Coronary artery disease
     Dosage: 5 MILLIGRAM DAILY;
     Dates: start: 201810
  7. POLYETHYLENE GLYCOL 3350\POTASSIUM CHLORIDE\SODIUM BICARBONATE\SODIUM [Concomitant]
     Active Substance: POLYETHYLENE GLYCOL 3350\POTASSIUM CHLORIDE\SODIUM BICARBONATE\SODIUM CHLORIDE
     Indication: Constipation prophylaxis
     Dosage: DOSE(S): 1 BAG, 3/DAYS
     Dates: start: 20230419
  8. PREDNISONE [Concomitant]
     Active Substance: PREDNISONE
     Indication: Prophylaxis
     Dates: start: 20230419, end: 20230520
  9. SPIRONOLACTONE [Concomitant]
     Active Substance: SPIRONOLACTONE
     Indication: Coronary artery disease
     Dosage: 50 MILLIGRAM DAILY;
     Dates: start: 201810
  10. ELIQUIS [Concomitant]
     Active Substance: APIXABAN
     Indication: Coronary artery disease
     Dosage: 5 MILLIGRAM DAILY;
     Dates: start: 201810
  11. PASPERTIN [LAUROMACROGOL 400;METOCLOPRAMIDE] [Concomitant]
     Indication: Prophylaxis of nausea and vomiting
     Dates: start: 20230419
  12. BEAM [Concomitant]
     Active Substance: SODIUM FLUORIDE
     Indication: Follicular lymphoma
     Dates: start: 20090303, end: 201012
  13. ENTRESTO [Concomitant]
     Active Substance: SACUBITRIL\VALSARTAN
     Indication: Coronary artery disease
     Dosage: DOSE(S): 24/26, EVERY 1 DAYS
     Dates: start: 202304
  14. ACETAMINOPHEN [Concomitant]
     Active Substance: ACETAMINOPHEN
     Indication: Pain prophylaxis
     Dosage: 2000 MILLIGRAM DAILY;
     Dates: start: 20230419
  15. LOPERAMIDE HYDROCHLORIDE [Concomitant]
     Active Substance: LOPERAMIDE HYDROCHLORIDE
     Indication: Prophylaxis against diarrhoea
     Dosage: FREQ:2 H;DOSE(S): 2 MG, EVERY 2 HOURS
     Dates: start: 20230503
  16. MAGNESIUM CARBONATE\MAGNESIUM OXIDE [Concomitant]
     Active Substance: MAGNESIUM CARBONATE\MAGNESIUM OXIDE
     Indication: Prophylaxis
     Dosage: 6.1 GRAM DAILY;
     Dates: start: 20230209
  17. BISOPROLOL FUMARATE [Concomitant]
     Active Substance: BISOPROLOL FUMARATE
     Indication: Coronary artery disease
     Dosage: 5 MILLIGRAM DAILY;
     Dates: start: 201810
  18. ZOFRAN [Concomitant]
     Active Substance: ONDANSETRON HYDROCHLORIDE
     Indication: Prophylaxis of nausea and vomiting
     Dosage: 16 MILLIGRAM DAILY;
     Dates: start: 20230419

REACTIONS (3)
  - C-reactive protein increased [Not Recovered/Not Resolved]
  - Staphylococcus test positive [Unknown]
  - Abscess neck [Unknown]

NARRATIVE: CASE EVENT DATE: 20230810
